FAERS Safety Report 16777734 (Version 1)
Quarter: 2019Q3

REPORT INFORMATION
  Report Type: Spontaneous
  Country: CN (occurrence: CN)
  Receive Date: 20190905
  Receipt Date: 20190905
  Transmission Date: 20191005
  Serious: Yes (Death)
  Sender: FDA-Public Use
  Company Number: PHHY2019CN204521

PATIENT
  Age: 6 Year
  Sex: Female

DRUGS (2)
  1. PREDNISONE. [Suspect]
     Active Substance: PREDNISONE
     Indication: STILL^S DISEASE
     Route: 065
  2. METHOTREXATE. [Suspect]
     Active Substance: METHOTREXATE
     Indication: STILL^S DISEASE
     Route: 065

REACTIONS (7)
  - Infection [Fatal]
  - Herpes simplex [Fatal]
  - Skin ulcer [Fatal]
  - Haemophagocytic lymphohistiocytosis [Fatal]
  - Blister [Fatal]
  - Scab [Fatal]
  - Skin erosion [Fatal]
